FAERS Safety Report 11184279 (Version 1)
Quarter: 2015Q2

REPORT INFORMATION
  Report Type: Spontaneous
  Country: IE (occurrence: None)
  Receive Date: 20150610
  Receipt Date: 20150610
  Transmission Date: 20150821
  Serious: Yes (Hospitalization)
  Sender: FDA-Public Use
  Company Number: 2015AMD00087

PATIENT
  Age: 23 Month
  Sex: Female

DRUGS (2)
  1. EPINEPHRINE. [Suspect]
     Active Substance: EPINEPHRINE
     Indication: ANAESTHESIA
     Dosage: 1:1000, 20 MINUTES, ONCE TOPICAL
     Route: 061
  2. COCAINE [Suspect]
     Active Substance: COCAINE
     Indication: ANAESTHESIA
     Dosage: 4%, 20 MINUTES, ONCE, TOPICAL
     Route: 061

REACTIONS (7)
  - Agitation [None]
  - Acute pulmonary oedema [None]
  - Electrocardiogram ST segment abnormal [None]
  - Toxicity to various agents [None]
  - Myocardial ischaemia [None]
  - Tachycardia [None]
  - Troponin T increased [None]
